FAERS Safety Report 12056859 (Version 3)
Quarter: 2016Q2

REPORT INFORMATION
  Report Type: Spontaneous
  Country: FR (occurrence: FR)
  Receive Date: 20160209
  Receipt Date: 20160503
  Transmission Date: 20160815
  Serious: Yes (Hospitalization)
  Sender: FDA-Public Use
  Company Number: FR-PFIZER INC-2016065317

PATIENT
  Age: 76 Year
  Sex: Male

DRUGS (20)
  1. MIANSERIN HYDROCHLORIDE [Suspect]
     Active Substance: MIANSERIN HYDROCHLORIDE
     Dosage: 20 MG, DAILY
     Route: 048
     Dates: start: 20160112, end: 201601
  2. MIANSERIN HYDROCHLORIDE [Suspect]
     Active Substance: MIANSERIN HYDROCHLORIDE
     Dosage: 30 MG, DAILY
     Route: 048
     Dates: start: 20160115, end: 20160118
  3. IMOVANE [Suspect]
     Active Substance: ZOPICLONE
     Dosage: 3.75 MG, DAILY
     Route: 048
     Dates: start: 20160112, end: 201601
  4. IMOVANE [Suspect]
     Active Substance: ZOPICLONE
     Dosage: 7.5 MG, DAILY
     Route: 048
     Dates: start: 20160115, end: 20160118
  5. MODOPAR [Concomitant]
     Active Substance: BENSERAZIDE HYDROCHLORIDE\LEVODOPA
     Dosage: 62.5 MG, DAILY
     Dates: start: 20160115, end: 20160117
  6. SERESTA [Suspect]
     Active Substance: OXAZEPAM
     Dosage: 1 UP TO 2 DF OF 10 MG, 3X/DAY
     Route: 048
     Dates: start: 201601, end: 20160112
  7. MODOPAR [Concomitant]
     Active Substance: BENSERAZIDE HYDROCHLORIDE\LEVODOPA
     Dosage: 125 MG, 3X/DAY IN THE MORNING, AT NOON, AND IN THE EVENING
  8. ROCEPHINE [Concomitant]
     Active Substance: CEFTRIAXONE SODIUM
     Dosage: 1 G, DAILY
     Dates: start: 20160115, end: 20160118
  9. METFORMIN [Concomitant]
     Active Substance: METFORMIN HYDROCHLORIDE
     Dosage: 500 MG, 2X/DAY IN THE MORNING AND IN THE EVENING
  10. XANAX [Suspect]
     Active Substance: ALPRAZOLAM
     Dosage: 0.25 MG, 1X/DAY IN THE EVENING
     Route: 048
     Dates: start: 201601, end: 20160112
  11. PAROXETINE. [Suspect]
     Active Substance: PAROXETINE
     Dosage: 20 MG, 1X/DAY IN THE MORNING
     Route: 048
     Dates: end: 20160112
  12. SYMBICORT [Concomitant]
     Active Substance: BUDESONIDE\FORMOTEROL FUMARATE DIHYDRATE
     Dosage: 2 PUFFS OF 200 UG/6 UG, DAILY
  13. TAHOR [Concomitant]
     Active Substance: ATORVASTATIN CALCIUM
     Dosage: 40 MG, 1X/DAY IN THE EVENING
  14. MODOPAR [Concomitant]
     Active Substance: BENSERAZIDE HYDROCHLORIDE\LEVODOPA
     Dosage: 125 MG, 3X/DAY
     Dates: start: 20160118, end: 2016
  15. DAFALGAN [Concomitant]
     Active Substance: ACETAMINOPHEN
     Indication: PAIN
     Dosage: 500 MG, AS NEEDED
  16. HEMIGOXINE [Concomitant]
     Active Substance: DIGOXIN
     Dosage: 0.125 MG, 1X/DAY AT NOON
  17. FORLAX [Concomitant]
     Active Substance: POLYETHYLENE GLYCOL 4000
     Dosage: 10 G, 1 UP TO 2 TIMES PER DAY
  18. MODOPAR [Concomitant]
     Active Substance: BENSERAZIDE HYDROCHLORIDE\LEVODOPA
     Dosage: 62.5 MG, 3X/DAY
     Dates: start: 2016, end: 2016
  19. KARDEGIC [Concomitant]
     Active Substance: ASPIRIN LYSINE
     Dosage: 75 MG, 1X/DAY AT NOON
  20. PERINDOPRIL [Concomitant]
     Active Substance: PERINDOPRIL
     Dosage: 0.5 DF OF 4 MG, 1X/DAY IN THE EVENING

REACTIONS (8)
  - Confusional state [Not Recovered/Not Resolved]
  - Fall [Unknown]
  - Gait disturbance [Not Recovered/Not Resolved]
  - Drug ineffective [Unknown]
  - Decreased appetite [Not Recovered/Not Resolved]
  - Condition aggravated [Not Recovered/Not Resolved]
  - Sleep disorder [Not Recovered/Not Resolved]
  - Progressive supranuclear palsy [Not Recovered/Not Resolved]

NARRATIVE: CASE EVENT DATE: 201512
